FAERS Safety Report 4313781-2 (Version None)
Quarter: 2004Q1

REPORT INFORMATION
  Report Type: 
  Country: None (occurrence: None)
  Receive Date: 20040305
  Receipt Date: 20040223
  Transmission Date: 20041129
  Serious: Yes (Other)
  Sender: FDA-Public Use
  Company Number: K200400254

PATIENT
  Age: 22 Year
  Sex: Male
  Weight: 68 kg

DRUGS (3)
  1. SONATA [Suspect]
     Indication: INSOMNIA
     Dosage: 10 MG, SINGLE, ORAL
     Route: 048
     Dates: start: 20040209, end: 20040209
  2. LEVOXYL [Concomitant]
  3. KLONOPIN [Concomitant]

REACTIONS (13)
  - AMNESIA [None]
  - ANGER [None]
  - ANTISOCIAL PERSONALITY DISORDER [None]
  - COMMUNICATION DISORDER [None]
  - CRYING [None]
  - EYE ROLLING [None]
  - HALLUCINATION, VISUAL [None]
  - HEART RATE INCREASED [None]
  - ONYCHOPHAGIA [None]
  - SCRATCH [None]
  - SELF INJURIOUS BEHAVIOUR [None]
  - SKIN IRRITATION [None]
  - TREMOR [None]
